FAERS Safety Report 15899374 (Version 2)
Quarter: 2021Q4

REPORT INFORMATION
  Report Type: Spontaneous
  Country: GR (occurrence: GR)
  Receive Date: 20190201
  Receipt Date: 20211216
  Transmission Date: 20220303
  Serious: Yes (Other)
  Sender: FDA-Public Use
  Company Number: PHHY2019GR019672

PATIENT
  Age: 3 Year

DRUGS (5)
  1. BUDESONIDE [Suspect]
     Active Substance: BUDESONIDE
     Indication: Pneumonia pneumococcal
     Dosage: UNK
     Route: 065
  2. ALBUTEROL [Suspect]
     Active Substance: ALBUTEROL
     Indication: Pneumonia pneumococcal
     Dosage: UNK
     Route: 065
  3. CLINDAMYCIN HYDROCHLORIDE [Suspect]
     Active Substance: CLINDAMYCIN HYDROCHLORIDE
     Indication: Pneumonia pneumococcal
     Dosage: UNK
     Route: 065
  4. CEFTRIAXONE [Suspect]
     Active Substance: CEFTRIAXONE
     Indication: Pneumonia pneumococcal
     Route: 042
  5. OXYGEN [Concomitant]
     Active Substance: OXYGEN
     Indication: Product used for unknown indication
     Dosage: UNK
     Route: 065

REACTIONS (4)
  - Pneumonia pneumococcal [Unknown]
  - Respiratory distress [Unknown]
  - Laboratory test abnormal [Unknown]
  - Drug ineffective [Unknown]
